FAERS Safety Report 25670232 (Version 3)
Quarter: 2025Q4

REPORT INFORMATION
  Report Type: Spontaneous
  Country: US (occurrence: US)
  Receive Date: 20250812
  Receipt Date: 20251118
  Transmission Date: 20260118
  Serious: No
  Sender: SANOFI AVENTIS
  Company Number: US-SA-2025SA235176

PATIENT
  Age: 72 Year
  Sex: Female

DRUGS (4)
  1. DUPIXENT [Suspect]
     Active Substance: DUPILUMAB
     Indication: Eczema
     Dosage: 600 MG, 1X
     Route: 058
     Dates: start: 202504, end: 202504
  2. DUPIXENT [Suspect]
     Active Substance: DUPILUMAB
     Dosage: 300 MG, QOW
     Route: 058
     Dates: start: 202504, end: 202506
  3. HYDROCODONE [Suspect]
     Active Substance: HYDROCODONE
     Indication: Pain
     Dosage: UNK
     Dates: start: 2025
  4. HYDROCODONE [Suspect]
     Active Substance: HYDROCODONE
     Indication: Spinal stenosis

REACTIONS (2)
  - Spinal stenosis [Unknown]
  - Pain [Unknown]

NARRATIVE: CASE EVENT DATE: 20250101
